FAERS Safety Report 7700886-9 (Version None)
Quarter: 2011Q3

REPORT INFORMATION
  Report Type: 
  Country: None (occurrence: None)
  Receive Date: 20110822
  Receipt Date: 20110816
  Transmission Date: 20111222
  Serious: Yes (Other)
  Sender: FDA-Public Use
  Company Number: PHHY2011BE73391

PATIENT
  Age: 1 Day
  Weight: 2.95 kg

DRUGS (1)
  1. METHERGINE [Suspect]
     Dosage: 10 DRP, UNK

REACTIONS (9)
  - WRONG DRUG ADMINISTERED [None]
  - CYANOSIS [None]
  - AGITATION [None]
  - TEARFULNESS [None]
  - ACIDOSIS [None]
  - ABDOMINAL PAIN [None]
  - HYPERREFLEXIA [None]
  - RESPIRATORY DEPRESSION [None]
  - BRADYPNOEA [None]
